FAERS Safety Report 11109310 (Version 3)
Quarter: 2015Q3

REPORT INFORMATION
  Report Type: Report from Study
  Country: US (occurrence: US)
  Receive Date: 20150513
  Receipt Date: 20150703
  Transmission Date: 20151125
  Serious: Yes (Death)
  Sender: FDA-Public Use
  Company Number: US-AMGEN-USASL2015046105

PATIENT
  Age: 85 Year
  Sex: Female
  Weight: 81.63 kg

DRUGS (1)
  1. PROCRIT [Suspect]
     Active Substance: ERYTHROPOIETIN
     Indication: ANAEMIA
     Dosage: 40000 UNIT, MONTHLY PRN
     Route: 058

REACTIONS (1)
  - Cardiac failure congestive [Fatal]
